FAERS Safety Report 19006013 (Version 2)
Quarter: 2025Q4

REPORT INFORMATION
  Report Type: Spontaneous
  Country: US (occurrence: US)
  Receive Date: 20210314
  Receipt Date: 20251216
  Transmission Date: 20260118
  Serious: No
  Sender: AMGEN
  Company Number: US-AMGEN-USASP2021038922

PATIENT
  Age: 56 Year
  Sex: Male

DRUGS (4)
  1. OTEZLA [Suspect]
     Active Substance: APREMILAST
     Indication: Psoriasis
     Dosage: 30 MILLIGRAM, BID
     Route: 048
     Dates: start: 20210212
  2. OTEZLA [Suspect]
     Active Substance: APREMILAST
     Indication: Psoriatic arthropathy
  3. OSELTAMIVIR [Concomitant]
     Active Substance: OSELTAMIVIR
     Dosage: 75 MILLIGRAM
  4. TALTZ [Concomitant]
     Active Substance: IXEKIZUMAB
     Dosage: 80 MILLIGRAM

REACTIONS (2)
  - Psoriasis [Not Recovered/Not Resolved]
  - Pain [Unknown]

NARRATIVE: CASE EVENT DATE: 20210212
